FAERS Safety Report 23776850 (Version 1)
Quarter: 2024Q2

REPORT INFORMATION
  Report Type: Spontaneous
  Country: GB (occurrence: GB)
  Receive Date: 20240424
  Receipt Date: 20240424
  Transmission Date: 20240716
  Serious: Yes (Other)
  Sender: FDA-Public Use
  Company Number: GB-MHRA-MED-202403191643385820-CBLSV

PATIENT
  Age: 28 Year
  Sex: Female
  Weight: 102 kg

DRUGS (2)
  1. SERTRALINE [Suspect]
     Active Substance: SERTRALINE HYDROCHLORIDE
     Indication: Adverse drug reaction
     Dosage: 75 MILLIGRAM, TABLET
     Route: 065
     Dates: start: 20230724, end: 20240216
  2. CITALOPRAM [Concomitant]
     Active Substance: CITALOPRAM\CITALOPRAM HYDROBROMIDE
     Indication: Adverse drug reaction
     Dosage: UNK
     Route: 065
     Dates: start: 201509, end: 20230723

REACTIONS (5)
  - Hallucination [Recovered/Resolved]
  - Confusional state [Recovered/Resolved]
  - Headache [Unknown]
  - Malaise [Unknown]
  - Feeling abnormal [Unknown]
